FAERS Safety Report 7135954-6 (Version None)
Quarter: 2010Q4

REPORT INFORMATION
  Report Type: 
  Country: None (occurrence: None)
  Receive Date: 20101204
  Receipt Date: 20100803
  Transmission Date: 20110411
  Serious: Yes (Hospitalization)
  Sender: FDA-Public Use
  Company Number: US-BAYER-201013589NA

PATIENT

DRUGS (7)
  1. YASMIN [Suspect]
     Dosage: SAMPLES RECEIVED IN 2000-2006. - AS USED DOSE: UNK
     Route: 048
     Dates: start: 20030101, end: 20080201
  2. YASMIN [Suspect]
  3. LEXAPRO [Concomitant]
     Dosage: DAILY DOSE 20 MG
     Route: 065
  4. SEROQUEL [Concomitant]
     Dosage: DAILY DOSE 300 MG
     Route: 065
  5. TOPAMAX [Concomitant]
     Dosage: DAILY DOSE 200 MG
     Route: 065
  6. FLUOXETINE [Concomitant]
     Dosage: DAILY DOSE 20 MG
     Route: 065
  7. RAMIPRIL [Concomitant]
     Route: 065
     Dates: start: 20080201, end: 20080701

REACTIONS (4)
  - ACUTE MYOCARDIAL INFARCTION [None]
  - BUNDLE BRANCH BLOCK RIGHT [None]
  - CORONARY ARTERY THROMBOSIS [None]
  - OFF LABEL USE [None]
